FAERS Safety Report 9672381 (Version 1)
Quarter: 2013Q4

REPORT INFORMATION
  Report Type: Spontaneous
  Country: FR (occurrence: None)
  Receive Date: 20131105
  Receipt Date: 20131105
  Transmission Date: 20140711
  Serious: Yes (Hospitalization)
  Sender: FDA-Public Use
  Company Number: 1927549

PATIENT
  Age: 41 Year
  Sex: Female

DRUGS (4)
  1. (CARBOPLATIN) [Suspect]
     Indication: OVARIAN CANCER
     Dosage: 555 MG MILLIGRAM(S) (UNKNOWN ) INTRAVENOUS DRIP
     Route: 041
     Dates: start: 20110309, end: 20110309
  2. (TAXOTERE) [Concomitant]
  3. MEDROL  /00049601/) [Concomitant]
  4. (ZOPHREN  /00955301/) [Concomitant]

REACTIONS (6)
  - Pruritus [None]
  - Sense of oppression [None]
  - Chest pain [None]
  - Hypotension [None]
  - Hypersensitivity [None]
  - Malaise [None]
